FAERS Safety Report 12721774 (Version 2)
Quarter: 2016Q3

REPORT INFORMATION
  Report Type: Spontaneous
  Country: US (occurrence: US)
  Receive Date: 20160907
  Receipt Date: 20160915
  Transmission Date: 20161109
  Serious: Yes (Life-Threatening, Hospitalization, Other)
  Sender: FDA-Public Use
  Company Number: US-JNJFOC-20160902857

PATIENT
  Age: 67 Year
  Sex: Female

DRUGS (3)
  1. CYCLOPHOSPHAMIDE. [Suspect]
     Active Substance: CYCLOPHOSPHAMIDE
     Indication: SARCOMA
     Route: 065
  2. DOXORUBICIN HYDROCHLORIDE. [Suspect]
     Active Substance: DOXORUBICIN HYDROCHLORIDE
     Indication: SARCOMA
     Route: 065
  3. DACARBAZINE. [Suspect]
     Active Substance: DACARBAZINE
     Indication: SARCOMA
     Route: 065

REACTIONS (9)
  - Abscess soft tissue [Unknown]
  - Septic shock [Recovering/Resolving]
  - Lethargy [Unknown]
  - Clostridium bacteraemia [Recovering/Resolving]
  - Neutropenia [Recovering/Resolving]
  - Product use issue [Unknown]
  - Off label use [Unknown]
  - Tachycardia [Unknown]
  - Fatigue [Unknown]
